FAERS Safety Report 16055476 (Version 3)
Quarter: 2019Q1

REPORT INFORMATION
  Report Type: Report from Study
  Country: KR (occurrence: KR)
  Receive Date: 20190311
  Receipt Date: 20190327
  Transmission Date: 20190418
  Serious: Yes (Other)
  Sender: FDA-Public Use
  Company Number: KR-ROCHE-2278823

PATIENT
  Age: 54 Year
  Sex: Female
  Weight: 73.2 kg

DRUGS (7)
  1. AMOXICILLIN/CLAVULANIC ACID [Concomitant]
     Active Substance: AMOXICILLIN\CLAVULANIC ACID
     Indication: HORDEOLUM
     Route: 048
     Dates: start: 20190211, end: 20190218
  2. PENIRAMIN [Concomitant]
     Indication: ALLERGY PROPHYLAXIS
     Route: 042
     Dates: start: 20190218, end: 20190218
  3. HELIXOR A [Concomitant]
     Indication: BREAST CANCER
     Route: 030
     Dates: start: 20190218
  4. RHINOVENT [Concomitant]
     Indication: RHINORRHOEA
     Route: 050
     Dates: start: 20190220, end: 20190222
  5. TRASTUZUMAB. [Suspect]
     Active Substance: TRASTUZUMAB
     Indication: HER-2 POSITIVE BREAST CANCER
     Dosage: NEXT DOSE: 04/MAR/2019
     Route: 058
     Dates: start: 20190211
  6. ENTELON [Concomitant]
     Indication: BREAST CANCER
     Route: 048
     Dates: start: 20180901
  7. CYMBALTA [Concomitant]
     Active Substance: DULOXETINE HYDROCHLORIDE
     Indication: DEPRESSION
     Route: 048
     Dates: start: 20190104

REACTIONS (3)
  - Neutropenia [Recovered/Resolved]
  - Injection site pain [Recovered/Resolved]
  - Anaemia [Recovered/Resolved]

NARRATIVE: CASE EVENT DATE: 20190218
